FAERS Safety Report 4948668-5 (Version None)
Quarter: 2006Q1

REPORT INFORMATION
  Report Type: 
  Country: None (occurrence: None)
  Receive Date: 20060313
  Receipt Date: 20060227
  Transmission Date: 20060701
  Serious: Yes (Hospitalization)
  Sender: FDA-Public Use
  Company Number: 2006027729

PATIENT
  Age: 66 Year
  Sex: Female

DRUGS (1)
  1. CELEBREX [Suspect]
     Indication: ARTHRALGIA
     Dosage: ORAL
     Route: 048
     Dates: start: 20040901, end: 20040905

REACTIONS (9)
  - ABDOMINAL PAIN [None]
  - CONFUSIONAL STATE [None]
  - FAECAL INCONTINENCE [None]
  - HEADACHE [None]
  - MEMORY IMPAIRMENT [None]
  - NAUSEA [None]
  - SYNCOPE [None]
  - URINARY INCONTINENCE [None]
  - VOMITING [None]
